FAERS Safety Report 13284340 (Version 4)
Quarter: 2017Q3

REPORT INFORMATION
  Report Type: Not Available
  Country: GB (occurrence: GB)
  Receive Date: 20170301
  Receipt Date: 20170815
  Transmission Date: 20171127
  Serious: Yes (Life-Threatening, Other)
  Sender: FDA-Public Use
  Company Number: GB-SYNTHON BV-NL01PV17_43170

PATIENT
  Age: 73 Year
  Sex: Male

DRUGS (6)
  1. OMEPRAZOLE ALMUS [Suspect]
     Active Substance: OMEPRAZOLE
     Indication: GASTRIC ULCER
     Dosage: 10 MG, DAILY
     Dates: start: 201106
  2. GINSENG                            /01384001/ [Concomitant]
     Active Substance: ASIAN GINSENG
     Dosage: UNK
  3. GINKGO BILOBA [Concomitant]
     Active Substance: GINKGO
     Dosage: UNK
  4. DIFFUNDOX [Suspect]
     Active Substance: TAMSULOSIN HYDROCHLORIDE
     Indication: PAIN
     Dosage: UNK
     Dates: start: 20150909
  5. GLUCOSAMINE [Concomitant]
     Active Substance: GLUCOSAMINE
     Dosage: UNK
  6. DIFFUNDOX [Suspect]
     Active Substance: TAMSULOSIN HYDROCHLORIDE
     Dosage: UNK
     Dates: start: 20151014

REACTIONS (7)
  - Macular hole [Unknown]
  - Eosinophilic myocarditis [Unknown]
  - Vision blurred [Unknown]
  - Macular detachment [Unknown]
  - Eosinophilia [Unknown]
  - Macular degeneration [Unknown]
  - Troponin increased [Unknown]

NARRATIVE: CASE EVENT DATE: 2008
